FAERS Safety Report 11520465 (Version 3)
Quarter: 2015Q4

REPORT INFORMATION
  Report Type: Spontaneous
  Country: US (occurrence: US)
  Receive Date: 20150918
  Receipt Date: 20151222
  Transmission Date: 20160304
  Serious: Yes (Other)
  Sender: FDA-Public Use
  Company Number: US-009507513-1509USA006916

PATIENT
  Age: 70 Year
  Sex: Male

DRUGS (21)
  1. SUTENT [Suspect]
     Active Substance: SUNITINIB MALATE
     Indication: RENAL CANCER
     Dosage: 50 MG, QD
     Route: 048
     Dates: start: 20150618
  2. SUTENT [Suspect]
     Active Substance: SUNITINIB MALATE
     Dosage: 50 MG, QD
     Route: 048
     Dates: start: 20130607
  3. ASPIR LOW [Concomitant]
     Active Substance: ASPIRIN
     Dosage: 81 MG, QD
     Route: 048
     Dates: start: 20130429
  4. PROTONIX [Concomitant]
     Active Substance: PANTOPRAZOLE SODIUM
     Dosage: 40 MG, QD
     Route: 048
     Dates: start: 20130909
  5. CHOLECALCIFEROL [Concomitant]
     Active Substance: CHOLECALCIFEROL
     Dosage: 1 TABLET 1000 UNITS, QD
     Route: 048
     Dates: start: 20140411
  6. ALDACTAZIDE [Concomitant]
     Active Substance: HYDROCHLOROTHIAZIDE\SPIRONOLACTONE
     Dosage: 25 MG, QD
     Route: 048
     Dates: start: 20130429
  7. ZOCOR [Suspect]
     Active Substance: SIMVASTATIN
     Dosage: 20 MG, HS
     Route: 048
     Dates: start: 20130429
  8. COLACE [Concomitant]
     Active Substance: DOCUSATE SODIUM
     Dosage: 100 MG, BID, PRN
     Route: 048
     Dates: start: 20130909
  9. LANTUS [Concomitant]
     Active Substance: INSULIN GLARGINE
     Dosage: 42 UNITS AT BEDTIME, STRENGTH 100 UNIT/ML
     Route: 058
     Dates: start: 20130429
  10. COZAAR [Suspect]
     Active Substance: LOSARTAN POTASSIUM
     Dosage: 100 MG, QD
     Route: 048
     Dates: start: 20130429
  11. PEPCID [Suspect]
     Active Substance: FAMOTIDINE
     Dosage: 20 MG AT BEDTIME
     Route: 048
     Dates: start: 20140411
  12. LANTUS [Concomitant]
     Active Substance: INSULIN GLARGINE
     Dosage: 26 UNITS BEFORE BEDTIME, STRENGTH 100 UNIT/ML
     Dates: start: 20140303
  13. GLIMEPIRIDE. [Concomitant]
     Active Substance: GLIMEPIRIDE
     Dosage: 4 MG, QD
     Route: 048
     Dates: start: 20130429
  14. LEVEMIR [Concomitant]
     Active Substance: INSULIN DETEMIR
     Dosage: 24 UNITS AT BEDTIME, STRENGTH 100 UNIT/ML
     Dates: start: 20150605
  15. ZENPEP [Concomitant]
     Active Substance: PANCRELIPASE\PANCRELIPASE AMYLASE\PANCRELIPASE LIPASE\PANCRELIPASE PROTEASE
     Dosage: 1 DF (STRENGTH: 5000-17000-27000 UNITS), TID
     Route: 048
     Dates: start: 20130530
  16. ALLOPURINOL. [Concomitant]
     Active Substance: ALLOPURINOL
     Dosage: 200 MG, QD
     Route: 048
     Dates: start: 20130429
  17. LEVEMIR [Concomitant]
     Active Substance: INSULIN DETEMIR
     Dosage: 26 UNITS BEFORE BEDTIME, STRENGTH 100 UNIT/ML
     Dates: start: 20130909
  18. COZAAR [Suspect]
     Active Substance: LOSARTAN POTASSIUM
     Dosage: 100 MG, QD
     Route: 048
     Dates: start: 20130909
  19. SUTENT [Suspect]
     Active Substance: SUNITINIB MALATE
     Dosage: 50 MG, QD
     Route: 048
     Dates: start: 20150605
  20. HUMALOG [Concomitant]
     Active Substance: INSULIN LISPRO
     Dosage: 3 UNITS MORNING GRADUALLY GOES UP THE HIGHER THE SUGAR UNITS SUBC SUPPER(SLIDING SCALE)
     Route: 058
     Dates: start: 20130429
  21. NOVOLOG [Concomitant]
     Active Substance: INSULIN ASPART
     Dosage: SLIDING SCALE 9-7-13, STRENGTH 100 UNIT/ML
     Dates: start: 20130909

REACTIONS (4)
  - Metastasis [Unknown]
  - Dehydration [Unknown]
  - Skin exfoliation [Unknown]
  - Hypertension [Unknown]

NARRATIVE: CASE EVENT DATE: 20130429
